FAERS Safety Report 6829682-1 (Version None)
Quarter: 2010Q3

REPORT INFORMATION
  Report Type: 
  Country: None (occurrence: None)
  Receive Date: 20100706
  Receipt Date: 20100623
  Transmission Date: 20110219
  Serious: Yes (Disabling)
  Sender: FDA-Public Use
  Company Number: CTI_01141_2010

PATIENT
  Sex: Female

DRUGS (1)
  1. FACTIVE [Suspect]
     Indication: PRODUCT USED FOR UNKNOWN INDICATION
     Dosage: 1 DF QD, DF ORAL
     Route: 048
     Dates: start: 20090503, end: 20090505

REACTIONS (3)
  - INSOMNIA [None]
  - PRURITUS GENERALISED [None]
  - URTICARIA [None]
